FAERS Safety Report 8181378-2 (Version None)
Quarter: 2012Q1

REPORT INFORMATION
  Report Type: 
  Country: None (occurrence: None)
  Receive Date: 20120302
  Receipt Date: 20120224
  Transmission Date: 20120608
  Serious: Yes (Hospitalization)
  Sender: FDA-Public Use
  Company Number: US-BAYER-2011-032954

PATIENT
  Age: 19 Year
  Sex: Female
  Weight: 53.515 kg

DRUGS (6)
  1. YAZ [Suspect]
     Indication: ACNE
     Dosage: UNK
     Dates: start: 20090101, end: 20091128
  2. IBUPROFEN TABLETS [Concomitant]
     Dosage: 800 MG, UNK
     Route: 048
     Dates: start: 20091012
  3. MOTRIN [Concomitant]
     Indication: MUSCULOSKELETAL PAIN
     Dosage: UNK
     Dates: start: 20091001
  4. OXYCODONE HCL AND ACETAMINOPHEN [Concomitant]
     Dosage: UNK
     Route: 048
     Dates: start: 20091014
  5. ZOFRAN [Concomitant]
     Indication: NAUSEA
  6. CYCLOBENZAPRINE [Concomitant]
     Dosage: 10 MG, UNK
     Route: 048

REACTIONS (4)
  - DEEP VEIN THROMBOSIS [None]
  - PULMONARY EMBOLISM [None]
  - THROMBOSIS [None]
  - PAIN [None]
